FAERS Safety Report 18906523 (Version 2)
Quarter: 2021Q1

REPORT INFORMATION
  Report Type: Spontaneous
  Country: US (occurrence: US)
  Receive Date: 20210217
  Receipt Date: 20210301
  Transmission Date: 20210420
  Serious: Yes (Other)
  Sender: FDA-Public Use
  Company Number: US-GLAXOSMITHKLINE-US2021GSK045424

PATIENT
  Sex: Female

DRUGS (8)
  1. ZANTAC [Suspect]
     Active Substance: RANITIDINE HYDROCHLORIDE
     Indication: SMALL INTESTINAL OBSTRUCTION
  2. ZANTAC [Suspect]
     Active Substance: RANITIDINE HYDROCHLORIDE
     Indication: GASTROINTESTINAL DISORDER
     Dosage: 150 MG, QD
     Route: 065
     Dates: start: 199411, end: 202008
  3. RANITIDINE. [Suspect]
     Active Substance: RANITIDINE
     Indication: GASTROINTESTINAL DISORDER
     Dosage: 150 MG, QD
     Route: 065
     Dates: start: 199411, end: 202008
  4. ZANTAC [Suspect]
     Active Substance: RANITIDINE HYDROCHLORIDE
     Indication: GASTROINTESTINAL DISORDER
     Dosage: 150 MG, QD
     Route: 065
     Dates: start: 199411, end: 202008
  5. ZANTAC [Suspect]
     Active Substance: RANITIDINE HYDROCHLORIDE
     Indication: SMALL INTESTINAL OBSTRUCTION
  6. RANITIDINE. [Suspect]
     Active Substance: RANITIDINE
     Indication: SMALL INTESTINAL OBSTRUCTION
  7. RANITIDINE. [Suspect]
     Active Substance: RANITIDINE
     Indication: GASTROINTESTINAL DISORDER
     Dosage: 150 MG, QD
     Route: 065
     Dates: start: 199411, end: 202008
  8. RANITIDINE. [Suspect]
     Active Substance: RANITIDINE
     Indication: SMALL INTESTINAL OBSTRUCTION

REACTIONS (1)
  - Renal cancer [Unknown]
